FAERS Safety Report 6349816-5 (Version None)
Quarter: 2009Q3

REPORT INFORMATION
  Report Type: 
  Country: None (occurrence: None)
  Receive Date: 20090911
  Receipt Date: 20090907
  Transmission Date: 20100115
  Serious: Yes (Life-Threatening, Hospitalization)
  Sender: FDA-Public Use
  Company Number: FR-MERCK-0909FRA00014

PATIENT
  Age: 53 Year
  Sex: Male

DRUGS (7)
  1. PRIMAXIN [Suspect]
     Indication: SEPSIS
     Route: 042
     Dates: start: 20080523, end: 20080526
  2. AMOXICILLIN AND CLAVULANATE POTASSIUM [Suspect]
     Indication: PNEUMONIA ASPIRATION
     Route: 065
     Dates: start: 20080401, end: 20080401
  3. AMOXICILLIN AND CLAVULANATE POTASSIUM [Suspect]
     Route: 065
     Dates: start: 20090506, end: 20090506
  4. PIPERACILLIN SODIUM AND TAZOBACTAM SODIUM [Concomitant]
     Indication: SEPSIS
     Route: 042
     Dates: start: 20080430, end: 20080519
  5. CIPROFLOXACIN HYDROCHLORIDE [Concomitant]
     Indication: SEPSIS
     Route: 065
     Dates: start: 20080430, end: 20080519
  6. VANCOMYCIN [Concomitant]
     Route: 042
     Dates: start: 20080430, end: 20080519
  7. LINEZOLID [Concomitant]
     Route: 065

REACTIONS (1)
  - DRUG RASH WITH EOSINOPHILIA AND SYSTEMIC SYMPTOMS [None]
